FAERS Safety Report 8619924-4 (Version None)
Quarter: 2012Q3

REPORT INFORMATION
  Report Type: 
  Country: None (occurrence: None)
  Receive Date: 20120824
  Receipt Date: 20120817
  Transmission Date: 20120928
  Serious: Yes (Other)
  Sender: FDA-Public Use
  Company Number: US-ABBOTT-12P-163-0943026-00

PATIENT
  Sex: Female
  Weight: 53.572 kg

DRUGS (4)
  1. HUMIRA [Suspect]
     Indication: CROHN'S DISEASE
     Route: 058
     Dates: start: 20110901
  2. BACTRIM [Concomitant]
     Indication: PRODUCT USED FOR UNKNOWN INDICATION
  3. METHOTREXATE [Concomitant]
     Indication: CROHN'S DISEASE
  4. CELEXA [Concomitant]
     Indication: DEPRESSION

REACTIONS (4)
  - SMALL INTESTINAL OBSTRUCTION [None]
  - GASTROINTESTINAL ANASTOMOTIC LEAK [None]
  - INTESTINAL STENOSIS [None]
  - INTESTINAL OBSTRUCTION [None]
